FAERS Safety Report 10553686 (Version 1)
Quarter: 2014Q4

REPORT INFORMATION
  Report Type: Spontaneous
  Country: US (occurrence: None)
  Receive Date: 20141029
  Receipt Date: 20141029
  Transmission Date: 20150529
  Serious: Yes (Other)
  Sender: FDA-Public Use
  Company Number: None

PATIENT
  Age: 47 Year
  Sex: Female
  Weight: 78.47 kg

DRUGS (4)
  1. ACETAZOLAMIDE. [Suspect]
     Active Substance: ACETAZOLAMIDE
     Indication: BENIGN INTRACRANIAL HYPERTENSION
     Route: 048
     Dates: start: 20141014, end: 20141022
  2. NORVASC [Concomitant]
     Active Substance: AMLODIPINE BESYLATE
  3. PREVACID [Concomitant]
     Active Substance: LANSOPRAZOLE
  4. TROKENDI [Concomitant]

REACTIONS (4)
  - Product substitution issue [None]
  - Headache [None]
  - Pruritus [None]
  - Therapeutic response changed [None]

NARRATIVE: CASE EVENT DATE: 20141022
